FAERS Safety Report 9158105 (Version 2)
Quarter: 2013Q2

REPORT INFORMATION
  Report Type: Report from Study
  Country: US (occurrence: US)
  Receive Date: 20130312
  Receipt Date: 20130401
  Transmission Date: 20140414
  Serious: Yes (Other)
  Sender: FDA-Public Use
  Company Number: US-ROCHE-1198989

PATIENT
  Age: 64 Year
  Sex: Female
  Weight: 62.2 kg

DRUGS (14)
  1. ACTEMRA [Suspect]
     Indication: RHEUMATOID ARTHRITIS
     Route: 042
     Dates: start: 20120808, end: 20130228
  2. ACTEMRA [Suspect]
     Route: 042
     Dates: start: 20121129
  3. ACTEMRA [Suspect]
     Route: 042
     Dates: start: 20121227
  4. ACTEMRA [Suspect]
     Route: 042
     Dates: start: 20130124
  5. ACTEMRA [Suspect]
     Route: 042
     Dates: start: 20130228
  6. ACTEMRA [Suspect]
     Route: 042
     Dates: start: 20120615, end: 20130228
  7. AMBIEN [Concomitant]
  8. OMEGA 3 [Concomitant]
  9. NEXIUM [Concomitant]
     Route: 065
  10. MELOXICAM [Concomitant]
     Route: 065
  11. FOLIC ACID [Concomitant]
     Route: 065
  12. DILTIAZEM HCL [Concomitant]
  13. TYLENOL [Concomitant]
  14. PREDNISONE [Concomitant]
     Route: 048
     Dates: start: 20130305, end: 201303

REACTIONS (7)
  - Rash [Recovered/Resolved]
  - Pruritus generalised [Recovered/Resolved]
  - Oropharyngeal blistering [Recovered/Resolved]
  - Mass [Recovered/Resolved]
  - Eyelid oedema [Recovered/Resolved]
  - Influenza [Recovered/Resolved]
  - Viral infection [Recovered/Resolved]
